FAERS Safety Report 9274774 (Version 10)
Quarter: 2014Q1

REPORT INFORMATION
  Report Type: Spontaneous
  Country: US (occurrence: US)
  Receive Date: 20130507
  Receipt Date: 20140109
  Transmission Date: 20141002
  Serious: Yes (Life-Threatening, Hospitalization, Congenital Anomaly)
  Sender: FDA-Public Use
  Company Number: US-JNJFOC-20130417518

PATIENT
  Sex: Female

DRUGS (2)
  1. TOPAMAX [Suspect]
     Indication: FOETAL EXPOSURE DURING PREGNANCY
     Route: 064
     Dates: start: 200707, end: 200708
  2. LAMICTAL [Suspect]
     Indication: FOETAL EXPOSURE DURING PREGNANCY
     Route: 064

REACTIONS (15)
  - Jaundice neonatal [Recovered/Resolved]
  - Pneumonia [Recovered/Resolved]
  - Craniosynostosis [Unknown]
  - Speech disorder [Unknown]
  - Developmental delay [Unknown]
  - Convulsion [Unknown]
  - Respiratory syncytial virus infection [Recovered/Resolved]
  - Pulmonary haemorrhage [Unknown]
  - Hypothermia [Unknown]
  - Depression [Unknown]
  - Hyperbilirubinaemia [Unknown]
  - Ear deformity acquired [Unknown]
  - Fall [Unknown]
  - Cardiac arrest [Unknown]
  - Otitis media [Not Recovered/Not Resolved]
